FAERS Safety Report 15374575 (Version 3)
Quarter: 2018Q3

REPORT INFORMATION
  Report Type: Spontaneous
  Country: HU (occurrence: HU)
  Receive Date: 20180912
  Receipt Date: 20180921
  Transmission Date: 20181010
  Serious: Yes (Hospitalization)
  Sender: FDA-Public Use
  Company Number: HU-PFIZER INC-2018363693

PATIENT
  Age: 4 Year
  Sex: Male

DRUGS (3)
  1. CEFOTAXIME [Suspect]
     Active Substance: CEFOTAXIME SODIUM
  2. CLARITHROMYCIN. [Suspect]
     Active Substance: CLARITHROMYCIN
  3. MEROPENEM. [Concomitant]
     Active Substance: MEROPENEM
     Dosage: UNK

REACTIONS (1)
  - Drug ineffective [Unknown]
